FAERS Safety Report 5475993-4 (Version None)
Quarter: 2007Q4

REPORT INFORMATION
  Report Type: 
  Country: None (occurrence: None)
  Receive Date: 20071003
  Receipt Date: 20070821
  Transmission Date: 20080405
  Serious: Yes (Disabling)
  Sender: FDA-Public Use
  Company Number: US-MERCK-0707USA00586

PATIENT
  Age: 45 Year
  Sex: Female
  Weight: 45 kg

DRUGS (3)
  1. VYTORIN [Suspect]
     Indication: BLOOD CHOLESTEROL
     Route: 048
     Dates: end: 20070101
  2. VYTORIN [Suspect]
     Route: 048
     Dates: start: 20070101, end: 20070702
  3. [THERAPY UNSPECIFIED] [Suspect]
     Indication: ARTHRITIS
     Route: 048
     Dates: start: 20070101, end: 20070101

REACTIONS (6)
  - ARTHRALGIA [None]
  - DACTYLITIS [None]
  - DRUG INEFFECTIVE [None]
  - MUSCLE SPASMS [None]
  - PARAESTHESIA [None]
  - SPONDYLITIS [None]
